FAERS Safety Report 21380880 (Version 1)
Quarter: 2022Q3

REPORT INFORMATION
  Report Type: Spontaneous
  Country: US (occurrence: US)
  Receive Date: 20220927
  Receipt Date: 20220927
  Transmission Date: 20221027
  Serious: No
  Sender: FDA-Public Use
  Company Number: US-ORGANON-O2209USA001414

PATIENT
  Sex: Female

DRUGS (2)
  1. ASMANEX [Suspect]
     Active Substance: MOMETASONE FUROATE
     Dosage: ONE DOSE A DAY
     Dates: start: 202207, end: 2022
  2. ASMANEX [Suspect]
     Active Substance: MOMETASONE FUROATE
     Dosage: ONE DOSE A DAY
     Dates: start: 20220902, end: 202209

REACTIONS (5)
  - Device malfunction [Unknown]
  - Poor quality device used [Unknown]
  - Device malfunction [Unknown]
  - Poor quality device used [Unknown]
  - No adverse event [Unknown]

NARRATIVE: CASE EVENT DATE: 20220701
